FAERS Safety Report 24650989 (Version 1)
Quarter: 2024Q4

REPORT INFORMATION
  Report Type: Spontaneous
  Country: CN (occurrence: CN)
  Receive Date: 20241122
  Receipt Date: 20241122
  Transmission Date: 20250114
  Serious: Yes (Hospitalization, Other)
  Sender: AMGEN
  Company Number: CN-KYOWAKIRIN-2024KK026111

PATIENT
  Sex: Male

DRUGS (1)
  1. FILGRASTIM [Suspect]
     Active Substance: FILGRASTIM
     Indication: Stem cell donor
     Dosage: 900 MICROGRAM
     Route: 058

REACTIONS (2)
  - Splenic injury [Unknown]
  - Splenic haemorrhage [Unknown]
